FAERS Safety Report 18392934 (Version 2)
Quarter: 2021Q3

REPORT INFORMATION
  Report Type: Spontaneous
  Country: US (occurrence: US)
  Receive Date: 20201016
  Receipt Date: 20210812
  Transmission Date: 20211014
  Serious: Yes (Other)
  Sender: FDA-Public Use
  Company Number: US-GLENMARK PHARMACEUTICALS-2020GMK049968

PATIENT
  Age: 4 Year
  Sex: Male

DRUGS (12)
  1. DEXRAZOXANE. [Concomitant]
     Active Substance: DEXRAZOXANE
     Dosage: UNK; SECOND CYCLE
     Route: 065
  2. DOXORUBICIN [Concomitant]
     Active Substance: DOXORUBICIN
     Dosage: UNK; SECOND CYCLE
     Route: 065
  3. DEXRAZOXANE. [Concomitant]
     Active Substance: DEXRAZOXANE
     Dosage: UNK; THIRD CYCLE
     Route: 065
  4. DOXORUBICIN [Concomitant]
     Active Substance: DOXORUBICIN
     Dosage: UNK; THIRD CYCLE
     Route: 065
  5. DEXRAZOXANE. [Concomitant]
     Active Substance: DEXRAZOXANE
     Indication: HEPATOBLASTOMA
     Dosage: UNK; FIRST CYCLE
     Route: 065
  6. METHYLPREDNISOLONE. [Suspect]
     Active Substance: METHYLPREDNISOLONE
     Indication: IMMUNOSUPPRESSANT DRUG THERAPY
     Dosage: UNK; TAPER
     Route: 065
  7. CISPLATIN. [Concomitant]
     Active Substance: CISPLATIN
     Indication: HEPATOBLASTOMA
     Dosage: UNK; FIRST CYCLE
     Route: 065
  8. CISPLATIN. [Concomitant]
     Active Substance: CISPLATIN
     Dosage: UNK; SECOND CYCLE
     Route: 065
  9. TACROLIMUS. [Suspect]
     Active Substance: TACROLIMUS
     Indication: IMMUNOSUPPRESSANT DRUG THERAPY
     Dosage: UNK; SERUM TROUGH 6?10 NG/ML
     Route: 065
  10. PREDNISOLONE. [Suspect]
     Active Substance: PREDNISOLONE
     Indication: IMMUNOSUPPRESSANT DRUG THERAPY
     Dosage: 0.3 MILLIGRAM/KILOGRAM
     Route: 065
  11. CISPLATIN. [Concomitant]
     Active Substance: CISPLATIN
     Dosage: UNK; THIRD CYCLE
     Route: 065
  12. DOXORUBICIN [Concomitant]
     Active Substance: DOXORUBICIN
     Indication: HEPATOBLASTOMA
     Dosage: UNK; FIRST CYCLE
     Route: 065

REACTIONS (2)
  - Neutropenia [Unknown]
  - Thrombocytopenia [Unknown]
